FAERS Safety Report 11502255 (Version 8)
Quarter: 2018Q3

REPORT INFORMATION
  Report Type: Report from Study
  Country: CR (occurrence: CR)
  Receive Date: 20150914
  Receipt Date: 20180904
  Transmission Date: 20181010
  Serious: Yes (Hospitalization)
  Sender: FDA-Public Use
  Company Number: PHHY2015CR110369

PATIENT
  Age: 79 Year
  Sex: Male
  Weight: 76 kg

DRUGS (5)
  1. SANDOSTATIN LAR DEPOT [Suspect]
     Active Substance: OCTREOTIDE ACETATE
     Indication: ACROMEGALY
     Dosage: 20 MG, QMO
     Route: 030
     Dates: start: 200910
  2. LOVASTATINA [Concomitant]
     Active Substance: LOVASTATIN
     Indication: PRODUCT USED FOR UNKNOWN INDICATION
     Dosage: 40 MG, QD
     Route: 048
  3. CABERGOLINA [Concomitant]
     Active Substance: CABERGOLINE
     Indication: PRODUCT USED FOR UNKNOWN INDICATION
     Dosage: 0.5 MG, QW2
     Route: 048
  4. ENALAPRIL [Concomitant]
     Active Substance: ENALAPRIL
     Indication: PRODUCT USED FOR UNKNOWN INDICATION
     Dosage: 20 MG, QD
     Route: 048
  5. AMLODIPINE [Concomitant]
     Active Substance: AMLODIPINE BESYLATE
     Indication: PRODUCT USED FOR UNKNOWN INDICATION
     Dosage: 5 MG, QD
     Route: 048

REACTIONS (11)
  - Hemiparesis [Recovering/Resolving]
  - Dyspnoea [Recovering/Resolving]
  - Hypoaesthesia oral [Recovering/Resolving]
  - Headache [Recovering/Resolving]
  - Swollen tongue [Recovering/Resolving]
  - Myocardial infarction [Recovering/Resolving]
  - Hypoaesthesia [Recovering/Resolving]
  - General physical health deterioration [Unknown]
  - Cerebrovascular accident [Unknown]
  - Sense of oppression [Recovering/Resolving]
  - Dehydration [Unknown]

NARRATIVE: CASE EVENT DATE: 20150828
